FAERS Safety Report 11428067 (Version 1)
Quarter: 2015Q3

REPORT INFORMATION
  Report Type: Spontaneous
  Country: US (occurrence: None)
  Receive Date: 20150827
  Receipt Date: 20150827
  Transmission Date: 20151125
  Serious: Yes (Disabling, Other)
  Sender: FDA-Public Use
  Company Number: None

PATIENT
  Age: 39 Year
  Sex: Female
  Weight: 60.33 kg

DRUGS (6)
  1. PRENATAL VITAMINS [Concomitant]
     Active Substance: VITAMINS
  2. ACZONE [Suspect]
     Active Substance: DAPSONE
     Indication: ACNE
     Dosage: 30G?THIN LAYER ?TWICE DAILY?TOPICAL ON FACE
     Route: 061
     Dates: start: 20150415, end: 20150718
  3. FISH OIL [Concomitant]
     Active Substance: FISH OIL
  4. SOMA [Concomitant]
     Active Substance: CARISOPRODOL
  5. XANAX [Concomitant]
     Active Substance: ALPRAZOLAM
  6. VAKUYN + ZOLOFT [Concomitant]

REACTIONS (24)
  - Vomiting [None]
  - Pain [None]
  - Feeling abnormal [None]
  - Furuncle [None]
  - Pulmonary congestion [None]
  - Headache [None]
  - Dizziness [None]
  - Pyrexia [None]
  - Fatigue [None]
  - Weight decreased [None]
  - Anxiety [None]
  - Abdominal pain upper [None]
  - Disturbance in attention [None]
  - Skin exfoliation [None]
  - Depression [None]
  - Nausea [None]
  - Diarrhoea [None]
  - Decreased appetite [None]
  - Panic attack [None]
  - Back pain [None]
  - Hallucination, visual [None]
  - Chills [None]
  - Nasal congestion [None]
  - Pancreatitis [None]

NARRATIVE: CASE EVENT DATE: 20150424
